FAERS Safety Report 17463673 (Version 1)
Quarter: 2020Q1

REPORT INFORMATION
  Report Type: Report from Study
  Country: JP (occurrence: JP)
  Receive Date: 20200226
  Receipt Date: 20200226
  Transmission Date: 20200409
  Serious: Yes (Hospitalization, Other)
  Sender: FDA-Public Use
  Company Number: JP-JNJFOC-20160115308

PATIENT
  Age: 64 Year
  Sex: Male

DRUGS (33)
  1. ALFACALCIDOL [Concomitant]
     Active Substance: ALFACALCIDOL
     Indication: OSTEOPOROSIS
     Route: 048
     Dates: start: 20170406
  2. DOXIL INJECTION [Concomitant]
     Indication: KAPOSI^S SARCOMA
     Dosage: DOXORUBICIN HYDROCHLORIDE:20MG
     Route: 042
     Dates: start: 20150428, end: 20150428
  3. DOXIL INJECTION [Concomitant]
     Dosage: DOXORUBICIN HYDROCHLORIDE:20MG
     Route: 042
     Dates: start: 20150519, end: 20150519
  4. ALFAROL [Concomitant]
     Active Substance: ALFACALCIDOL
     Indication: OSTEOPOROSIS
     Route: 048
     Dates: start: 20130401, end: 20170405
  5. FAMOTIDINE. [Concomitant]
     Active Substance: FAMOTIDINE
     Indication: PROPHYLAXIS
     Route: 048
     Dates: start: 20141205
  6. LOPEMIN                            /00384302/ [Concomitant]
     Active Substance: LOPERAMIDE HYDROCHLORIDE
     Indication: DIARRHOEA
     Route: 048
     Dates: start: 20150914, end: 20180401
  7. XALACOM [Concomitant]
     Active Substance: LATANOPROST\TIMOLOL MALEATE
     Indication: GLAUCOMA
     Route: 047
     Dates: start: 20150611, end: 20180311
  8. ONDANSETRON [Concomitant]
     Active Substance: ONDANSETRON
     Indication: PROPHYLAXIS
     Route: 065
     Dates: start: 20150428, end: 20150428
  9. LUPRAC [Concomitant]
     Active Substance: TORSEMIDE
     Indication: OEDEMA PERIPHERAL
     Route: 048
     Dates: start: 20151207, end: 20161204
  10. LUPRAC [Concomitant]
     Active Substance: TORSEMIDE
     Indication: DIARRHOEA
     Route: 048
     Dates: start: 20180216, end: 20181106
  11. ALENDRONATE [Concomitant]
     Active Substance: ALENDRONATE SODIUM
     Indication: OSTEOPOROSIS
     Route: 065
     Dates: start: 20150420
  12. ONDANSETRON [Concomitant]
     Active Substance: ONDANSETRON
     Dosage: 4-12 COURSE
     Route: 065
     Dates: start: 20160421, end: 20170207
  13. FUROSEMIDE. [Concomitant]
     Active Substance: FUROSEMIDE
     Indication: DIARRHOEA
     Route: 065
     Dates: start: 20170401, end: 20180215
  14. FERROUS CITRATE NA [Concomitant]
     Active Substance: SODIUM FERROUS CITRATE
     Indication: PROPHYLAXIS
     Route: 048
     Dates: start: 20180312, end: 20180617
  15. DESCOVY [Concomitant]
     Active Substance: EMTRICITABINE\TENOFOVIR ALAFENAMIDE FUMARATE
     Route: 048
     Dates: start: 20181011
  16. EDURANT [Suspect]
     Active Substance: RILPIVIRINE HYDROCHLORIDE
     Indication: HIV INFECTION
     Dosage: RILPIVIRINE HYDROCHLORIDE:25MG
     Route: 048
     Dates: start: 20141205, end: 20180311
  17. EDURANT [Suspect]
     Active Substance: RILPIVIRINE HYDROCHLORIDE
     Dosage: RILPIVIRINE HYDROCHLORIDE:25MG
     Route: 048
     Dates: start: 20180319, end: 20181010
  18. TIVICAY [Suspect]
     Active Substance: DOLUTEGRAVIR SODIUM
     Indication: HIV INFECTION
     Route: 048
     Dates: start: 20141205
  19. PREDONINE [Concomitant]
     Active Substance: PREDNISOLONE
     Route: 065
     Dates: start: 20130401, end: 20150802
  20. PREDONINE [Concomitant]
     Active Substance: PREDNISOLONE
     Dosage: MORNING 5 MG, EVENING 2.5 MG
     Route: 065
     Dates: start: 20150803
  21. ONDANSETRON [Concomitant]
     Active Substance: ONDANSETRON
     Route: 065
     Dates: start: 20150519, end: 20150519
  22. MIYA-BM [Concomitant]
     Active Substance: CLOSTRIDIUM BUTYRICUM SPORES STRAIN M-55
     Indication: DIARRHOEA
     Route: 048
     Dates: start: 20150803, end: 20150913
  23. ALPHAGAN P [Concomitant]
     Active Substance: BRIMONIDINE TARTRATE
     Indication: GLAUCOMA
     Route: 047
     Dates: start: 20160822
  24. XALATAN [Concomitant]
     Active Substance: LATANOPROST
     Indication: GLAUCOMA
     Dosage: LATANOPROST
     Route: 047
     Dates: start: 20150520, end: 20150610
  25. PREDONINE [Concomitant]
     Active Substance: PREDNISOLONE
     Indication: INTERSTITIAL LUNG DISEASE
     Route: 065
     Dates: start: 20130401, end: 20150802
  26. DOXIL INJECTION [Concomitant]
     Dosage: 4-12 COURSE, DOXORUBICIN HYDROCHLORIDE:20MG
     Route: 042
     Dates: start: 20160421, end: 20170207
  27. GLANATEC [Concomitant]
     Active Substance: RIPASUDIL HYDROCHLORIDE DIHYDRATE
     Indication: GLAUCOMA
     Dosage: RIPASUDIL HYDROCHLORIDE HYDRATE
     Route: 047
     Dates: start: 20150520, end: 20180209
  28. DAIPHEN [Concomitant]
     Active Substance: SULFAMETHOXAZOLE\TRIMETHOPRIM
     Indication: ANTIFUNGAL PROPHYLAXIS
     Dosage: SULFAMETHOXAZOLE_TRIMETHOPRIM
     Route: 048
     Dates: start: 20130401
  29. CELECOX [Concomitant]
     Active Substance: CELECOXIB
     Indication: PROPHYLAXIS
     Route: 048
     Dates: start: 20140327, end: 20180812
  30. TIMOPTOL [Concomitant]
     Active Substance: TIMOLOL
     Indication: GLAUCOMA
     Dosage: TIMOLOL MALEATE
     Route: 047
     Dates: start: 20150520, end: 20150610
  31. FUROSEMIDE. [Concomitant]
     Active Substance: FUROSEMIDE
     Indication: OEDEMA PERIPHERAL
     Route: 065
     Dates: start: 20161205
  32. MS ONSHIPPU [Concomitant]
     Active Substance: CAMPHOR\CAPSICUM\METHYL SALICYLATE
     Route: 062
     Dates: start: 20180907, end: 20181105
  33. DESCOVY [Concomitant]
     Active Substance: EMTRICITABINE\TENOFOVIR ALAFENAMIDE FUMARATE
     Indication: HIV INFECTION
     Route: 048
     Dates: start: 20180312, end: 20180318

REACTIONS (4)
  - Compression fracture [Recovering/Resolving]
  - Helicobacter test positive [Recovered/Resolved]
  - Dyspnoea [Recovering/Resolving]
  - Epigastric discomfort [Recovering/Resolving]

NARRATIVE: CASE EVENT DATE: 201801
